FAERS Safety Report 14566909 (Version 2)
Quarter: 2018Q2

REPORT INFORMATION
  Report Type: Report from Study
  Country: US (occurrence: US)
  Receive Date: 20180223
  Receipt Date: 20180418
  Transmission Date: 20180711
  Serious: Yes (Hospitalization)
  Sender: FDA-Public Use
  Company Number: PHEH2018US006790

PATIENT
  Sex: Female
  Weight: 72.2 kg

DRUGS (4)
  1. NEURONTIN [Concomitant]
     Active Substance: GABAPENTIN
     Indication: PRODUCT USED FOR UNKNOWN INDICATION
     Dosage: 2 DF, TID
     Route: 048
  2. GABAPENTIN. [Suspect]
     Active Substance: GABAPENTIN
     Indication: PAIN IN EXTREMITY
     Dosage: 200 MG, TID
     Route: 065
  3. COPAXONE [Suspect]
     Active Substance: GLATIRAMER ACETATE
     Indication: PROPHYLAXIS
     Dosage: 20 MG, QD
     Route: 058
  4. GLATOPA [Suspect]
     Active Substance: GLATIRAMER ACETATE
     Indication: MULTIPLE SCLEROSIS
     Dosage: 20 MG, QD (ROTATES INJECTIONS SITES)
     Route: 058
     Dates: start: 20180116

REACTIONS (15)
  - Back disorder [Unknown]
  - Multiple sclerosis relapse [Unknown]
  - Spinal column stenosis [Unknown]
  - Intervertebral disc protrusion [Unknown]
  - Bladder dilatation [Unknown]
  - Back pain [Recovering/Resolving]
  - Muscle spasms [Unknown]
  - Constipation [Not Recovered/Not Resolved]
  - Blood pressure decreased [Recovering/Resolving]
  - Spondylolisthesis [Unknown]
  - Urinary incontinence [Recovered/Resolved]
  - Hypocalcaemia [Unknown]
  - Oedema peripheral [Unknown]
  - Arthropathy [Unknown]
  - Musculoskeletal discomfort [Recovering/Resolving]
